FAERS Safety Report 4308449-2 (Version None)
Quarter: 2004Q1

REPORT INFORMATION
  Report Type: 
  Country: None (occurrence: None)
  Receive Date: 20040301
  Receipt Date: 20040130
  Transmission Date: 20041129
  Serious: Yes (Death)
  Sender: FDA-Public Use
  Company Number: GB-ROCHE-357754

PATIENT
  Age: 55 Year
  Sex: Male

DRUGS (2)
  1. XENICAL [Suspect]
     Indication: DRUG USE FOR UNKNOWN INDICATION
     Route: 065
  2. UNKNOWN MEDICATION [Concomitant]
     Dosage: DRUG REPORTED AS LIPOSTATINS.

REACTIONS (2)
  - ADENOCARCINOMA [None]
  - METASTASES TO LIVER [None]
